FAERS Safety Report 16207883 (Version 1)
Quarter: 2019Q2

REPORT INFORMATION
  Report Type: Spontaneous
  Country: FR (occurrence: FR)
  Receive Date: 20190417
  Receipt Date: 20190417
  Transmission Date: 20190711
  Serious: Yes (Life-Threatening, Hospitalization)
  Sender: FDA-Public Use
  Company Number: FR-JNJFOC-20190422497

PATIENT
  Age: 35 Year
  Sex: Female
  Weight: 66 kg

DRUGS (1)
  1. SIMPONI [Suspect]
     Active Substance: GOLIMUMAB
     Indication: RHEUMATOID ARTHRITIS
     Route: 058
     Dates: start: 201210, end: 2018

REACTIONS (2)
  - Ventricular tachycardia [Recovered/Resolved with Sequelae]
  - Ventricular extrasystoles [Recovered/Resolved with Sequelae]

NARRATIVE: CASE EVENT DATE: 20130622
